FAERS Safety Report 11233011 (Version 3)
Quarter: 2015Q3

REPORT INFORMATION
  Report Type: Spontaneous
  Country: US (occurrence: US)
  Receive Date: 20150701
  Receipt Date: 20150723
  Transmission Date: 20151125
  Serious: Yes (Death, Other)
  Sender: FDA-Public Use
  Company Number: US-GLAXOSMITHKLINE-US2015GSK093977

PATIENT
  Age: 61 Year
  Sex: Female
  Weight: 57 kg

DRUGS (5)
  1. NORCO [Concomitant]
     Active Substance: ACETAMINOPHEN\HYDROCODONE BITARTRATE
  2. SYNTHROID [Concomitant]
     Active Substance: LEVOTHYROXINE SODIUM
  3. MS CONTIN [Concomitant]
     Active Substance: MORPHINE SULFATE
  4. HYDROCODONE [Concomitant]
     Active Substance: HYDROCODONE
  5. VOTRIENT [Suspect]
     Active Substance: PAZOPANIB HYDROCHLORIDE
     Indication: RENAL CELL CARCINOMA
     Dosage: 600 MG, QD
     Route: 065
     Dates: start: 201302, end: 201503

REACTIONS (4)
  - Metastatic renal cell carcinoma [Unknown]
  - Malaise [Unknown]
  - Cerebral haemorrhage [Fatal]
  - Disease progression [Unknown]

NARRATIVE: CASE EVENT DATE: 201505
